FAERS Safety Report 13771467 (Version 2)
Quarter: 2017Q3

REPORT INFORMATION
  Report Type: Report from Study
  Country: US (occurrence: US)
  Receive Date: 20170720
  Receipt Date: 20170802
  Transmission Date: 20171127
  Serious: Yes (Hospitalization, Other)
  Sender: FDA-Public Use
  Company Number: US-GILEAD-2017-0283746

PATIENT
  Age: 89 Year
  Sex: Female
  Weight: 50.7 kg

DRUGS (19)
  1. ZAROXOLYN [Concomitant]
     Active Substance: METOLAZONE
  2. REVATIO [Concomitant]
     Active Substance: SILDENAFIL CITRATE
  3. PROAIR HFA [Concomitant]
     Active Substance: ALBUTEROL SULFATE
  4. MAGNESIUM OXIDE. [Concomitant]
     Active Substance: MAGNESIUM OXIDE
  5. SPIRONOLACTONE. [Concomitant]
     Active Substance: SPIRONOLACTONE
  6. MELOXICAM. [Concomitant]
     Active Substance: MELOXICAM
  7. MONTELUKAST [Concomitant]
     Active Substance: MONTELUKAST SODIUM
  8. ELIQUIS [Concomitant]
     Active Substance: APIXABAN
  9. BUMETANIDE. [Concomitant]
     Active Substance: BUMETANIDE
  10. OMEPRAZOLE. [Concomitant]
     Active Substance: OMEPRAZOLE
  11. PREDNISONE. [Concomitant]
     Active Substance: PREDNISONE
  12. AMBRISENTAN [Suspect]
     Active Substance: AMBRISENTAN
     Indication: PRODUCT USED FOR UNKNOWN INDICATION
     Dosage: 5 MG, QD
     Route: 048
  13. OXYGEN. [Concomitant]
     Active Substance: OXYGEN
  14. EPIPEN [Concomitant]
     Active Substance: EPINEPHRINE
  15. FERRLECIT                          /00023541/ [Concomitant]
  16. SILDENAFIL CITRATE. [Concomitant]
     Active Substance: SILDENAFIL CITRATE
  17. TYLENOL ARTHRITIS PAIN [Concomitant]
     Active Substance: ACETAMINOPHEN
  18. BREO ELLIPTA [Concomitant]
     Active Substance: FLUTICASONE FUROATE\VILANTEROL TRIFENATATE
  19. VITAMIN B12 [Concomitant]
     Active Substance: CYANOCOBALAMIN

REACTIONS (4)
  - Loss of consciousness [Unknown]
  - Urinary tract infection [Recovered/Resolved]
  - Sepsis [Unknown]
  - Fall [Unknown]

NARRATIVE: CASE EVENT DATE: 20170622
